FAERS Safety Report 6421402-8 (Version None)
Quarter: 2009Q4

REPORT INFORMATION
  Report Type: 
  Country: None (occurrence: None)
  Receive Date: 20091030
  Receipt Date: 20091021
  Transmission Date: 20100525
  Serious: Yes (Life-Threatening, Hospitalization)
  Sender: FDA-Public Use
  Company Number: FR-BRISTOL-MYERS SQUIBB COMPANY-14796163

PATIENT
  Age: 60 Year
  Sex: Male
  Weight: 88 kg

DRUGS (5)
  1. ERBITUX [Suspect]
     Indication: COLORECTAL CANCER
     Route: 042
     Dates: start: 20090910, end: 20090910
  2. FOLINIC ACID [Concomitant]
     Indication: COLORECTAL CANCER
     Dosage: SOLUTION FOR INJECTION FOR MORE THAN 1 MONTH;
     Route: 042
  3. FLUOROURACIL [Concomitant]
     Indication: COLORECTAL CANCER
     Dosage: SOLUTION FOR INJECTION; ALSO IV BOLUS 400MG/M2 FOR MORE THAN 1 MONTH
     Route: 042
     Dates: start: 20090702, end: 20090911
  4. IRINOTECAN HCL [Concomitant]
     Indication: COLORECTAL CANCER
     Dosage: SOLUTION FOR INJECTION FOR MORE THAN 1 MONTH;4TH COURSE DAY 1+2
     Route: 042
     Dates: start: 20090702, end: 20090911
  5. ELVORINE [Concomitant]
     Indication: COLORECTAL CANCER
     Dosage: TAKEN ON DAY 1 AND 2.
     Route: 042
     Dates: start: 20090702, end: 20090911

REACTIONS (5)
  - ABDOMINAL PAIN UPPER [None]
  - GASTROINTESTINAL NECROSIS [None]
  - INTESTINAL OBSTRUCTION [None]
  - NAUSEA [None]
  - VOMITING [None]
